FAERS Safety Report 6411036-3 (Version None)
Quarter: 2009Q4

REPORT INFORMATION
  Report Type: 
  Country: None (occurrence: None)
  Receive Date: 20091021
  Receipt Date: 20091021
  Transmission Date: 20100525
  Serious: Yes (Hospitalization, Other)
  Sender: FDA-Public Use
  Company Number: None

PATIENT
  Age: 36 Year
  Sex: Female
  Weight: 69.8539 kg

DRUGS (1)
  1. MOXATAG [Suspect]
     Indication: LYME DISEASE
     Dosage: 775MG ONCE DAILY PO
     Route: 048
     Dates: start: 20090705, end: 20090718

REACTIONS (2)
  - ENTEROCOLITIS HAEMORRHAGIC [None]
  - PYREXIA [None]
